FAERS Safety Report 4451729-0 (Version None)
Quarter: 2004Q3

REPORT INFORMATION
  Report Type: 
  Country: None (occurrence: None)
  Receive Date: 20040915
  Receipt Date: 20040901
  Transmission Date: 20050211
  Serious: No
  Sender: FDA-Public Use
  Company Number: 04H-083-0272686-00

PATIENT
  Sex: 0

DRUGS (5)
  1. LEUCOVORIN CALCIUM [Suspect]
     Indication: CHEMOTHERAPY
     Dosage: 200 MG/M2, 1 IN 1 D, INTRAVENOUS
     Route: 042
  2. OXALIPLATIN [Suspect]
     Indication: CHEMOTHERAPY
     Dosage: 50 MG/M2, INTRAVENOUS
     Route: 042
  3. FLUOROURACIL [Suspect]
     Indication: CHEMOTHERAPY
     Dosage: 400 MG/M2, 1 IN 1 D, INTRAVENOUS;  600 MG/M2, 1 IN 1 D, INTRAVENOUS
     Route: 042
  4. HYDROXYTRYPTAMINE-3 ANTAGONIST [Concomitant]
  5. DEXAMETHASONE [Concomitant]

REACTIONS (2)
  - NEUTROPENIA [None]
  - THERAPEUTIC AGENT TOXICITY [None]
